FAERS Safety Report 17225951 (Version 1)
Quarter: 2020Q1

REPORT INFORMATION
  Report Type: Spontaneous
  Country: CA (occurrence: CA)
  Receive Date: 20200102
  Receipt Date: 20200102
  Transmission Date: 20200409
  Serious: Yes (Death, Other)
  Sender: FDA-Public Use
  Company Number: CA-ACTELION-A-NJ2019-199996

PATIENT
  Age: 28 Year
  Sex: Female
  Weight: 109 kg

DRUGS (6)
  1. EFFEXOR [Concomitant]
     Active Substance: VENLAFAXINE HYDROCHLORIDE
  2. VOLIBRIS [Concomitant]
     Active Substance: AMBRISENTAN
  3. LANSOPRAZOLE. [Concomitant]
     Active Substance: LANSOPRAZOLE
  4. TRANEXAMIC ACID. [Concomitant]
     Active Substance: TRANEXAMIC ACID
  5. REVATIO [Concomitant]
     Active Substance: SILDENAFIL CITRATE
  6. CARIPUL [Suspect]
     Active Substance: EPOPROSTENOL
     Indication: PULMONARY ARTERIAL HYPERTENSION
     Dosage: 15000 NG/ML
     Route: 042
     Dates: start: 20191213

REACTIONS (5)
  - Blood pressure decreased [Unknown]
  - Cardiac arrest [Fatal]
  - Pulmonary oedema [Unknown]
  - Hyperdynamic left ventricle [Unknown]
  - Dyspnoea [Unknown]

NARRATIVE: CASE EVENT DATE: 20191224
